FAERS Safety Report 4383332-5 (Version None)
Quarter: 2004Q2

REPORT INFORMATION
  Report Type: 
  Country: None (occurrence: None)
  Receive Date: 20040622
  Receipt Date: 20040622
  Transmission Date: 20050107
  Serious: Yes (Hospitalization)
  Sender: FDA-Public Use
  Company Number: None

PATIENT
  Age: 30 Year
  Sex: Male
  Weight: 96.5 kg

DRUGS (1)
  1. DILANTIN [Suspect]
     Indication: CONVULSION
     Dosage: 300 MG HS

REACTIONS (9)
  - ABNORMAL BEHAVIOUR [None]
  - BALANCE DISORDER [None]
  - DEPRESSED LEVEL OF CONSCIOUSNESS [None]
  - DRUG LEVEL ABOVE THERAPEUTIC [None]
  - HALLUCINATION, AUDITORY [None]
  - MARKEDLY REDUCED DIETARY INTAKE [None]
  - SOMNOLENCE [None]
  - STARING [None]
  - VOMITING [None]
